FAERS Safety Report 7295196-0 (Version None)
Quarter: 2011Q1

REPORT INFORMATION
  Report Type: 
  Country: None (occurrence: None)
  Receive Date: 20110216
  Receipt Date: 20101207
  Transmission Date: 20110831
  Serious: No
  Sender: FDA-Public Use
  Company Number: A0897206A

PATIENT
  Sex: Male

DRUGS (1)
  1. VOTRIENT [Suspect]
     Dosage: 800MG PER DAY
     Route: 048
     Dates: start: 20101116

REACTIONS (9)
  - HEADACHE [None]
  - DYSPNOEA [None]
  - INSOMNIA [None]
  - LETHARGY [None]
  - CHEST DISCOMFORT [None]
  - DYSPHONIA [None]
  - COUGH [None]
  - DIARRHOEA [None]
  - FATIGUE [None]
